FAERS Safety Report 15964473 (Version 1)
Quarter: 2019Q1

REPORT INFORMATION
  Report Type: Spontaneous
  Country: IN (occurrence: IN)
  Receive Date: 20190215
  Receipt Date: 20190215
  Transmission Date: 20190417
  Serious: Yes (Other)
  Sender: FDA-Public Use
  Company Number: IN-LUPIN HEALTHCARE (UK) LIMITED-2019-00655

PATIENT
  Age: 44 Year
  Sex: Male

DRUGS (5)
  1. EPILIVE FILM C.TABS 750 MG [Suspect]
     Active Substance: LEVETIRACETAM
     Indication: HEAD INJURY
     Dosage: 750 MILLIGRAM, BID
     Route: 048
  2. EPILIVE FILM C.TABS 750 MG [Suspect]
     Active Substance: LEVETIRACETAM
     Dosage: 750 MILLIGRAM, BID
     Route: 048
  3. EPILEX                             /00052501/ [Concomitant]
     Indication: HEAD INJURY
     Dosage: 500 MILLIGRAM, BID
     Route: 065
  4. EPTOIN [Concomitant]
     Active Substance: PHENYTOIN SODIUM
     Indication: HEAD INJURY
     Dosage: 300 MILLIGRAM, QD
     Route: 065
  5. FOLVITE [Concomitant]
     Active Substance: FOLIC ACID
     Indication: PRODUCT USED FOR UNKNOWN INDICATION
     Dosage: 1 DOSAGE FORM, QD
     Route: 065

REACTIONS (4)
  - Off label use [Unknown]
  - Product availability issue [Unknown]
  - Product dose omission [Unknown]
  - Seizure [Recovered/Resolved]

NARRATIVE: CASE EVENT DATE: 20190127
